FAERS Safety Report 12386272 (Version 1)
Quarter: 2016Q2

REPORT INFORMATION
  Report Type: Spontaneous
  Country: US (occurrence: US)
  Receive Date: 20160519
  Receipt Date: 20160519
  Transmission Date: 20160815
  Serious: Yes (Other)
  Sender: FDA-Public Use
  Company Number: US-MDT-ADR-2015-02372

PATIENT
  Age: 46 Year
  Sex: Female

DRUGS (6)
  1. BUPIVACAINE. [Suspect]
     Active Substance: BUPIVACAINE
     Dosage: 1.02 MG/DAY
     Dates: end: 20151210
  2. BUPIVACAINE. [Suspect]
     Active Substance: BUPIVACAINE
     Dosage: 7.2 MG/DAY
  3. BACLOFEN. [Suspect]
     Active Substance: BACLOFEN
     Dosage: 6.2 MG/DAY MINIMUM RATE
     Dates: end: 20151210
  4. BACLOFEN. [Suspect]
     Active Substance: BACLOFEN
     Dosage: 350 MCG/DAY
  5. BUPIVACAINE. [Suspect]
     Active Substance: BUPIVACAINE
     Dosage: 0.128 MG/DAY MINIMUM RATE
     Dates: end: 20151210
  6. BACLOFEN. [Suspect]
     Active Substance: BACLOFEN
     Dosage: 50 MCG/DAY
     Dates: end: 20151210

REACTIONS (3)
  - Overdose [Unknown]
  - Unresponsive to stimuli [Unknown]
  - Underdose [Unknown]
